FAERS Safety Report 7559914-6 (Version None)
Quarter: 2011Q2

REPORT INFORMATION
  Report Type: 
  Country: None (occurrence: None)
  Receive Date: 20110621
  Receipt Date: 20110607
  Transmission Date: 20111010
  Serious: Yes (Hospitalization)
  Sender: FDA-Public Use
  Company Number: PHHY2011BR15348

PATIENT
  Sex: Female

DRUGS (3)
  1. NOVOMIX [Concomitant]
     Dosage: 14 U, A DAY
  2. RASILEZ [Suspect]
     Indication: HYPERTENSION
     Dosage: 1 DF, (1 TABLET A DAY )
     Route: 048
     Dates: start: 20101001
  3. LEVEMIR [Concomitant]
     Indication: DIABETES MELLITUS
     Dosage: 14 U, A DAY

REACTIONS (3)
  - HYPERTENSION [None]
  - URINARY TRACT INFECTION [None]
  - BLOOD CHOLESTEROL INCREASED [None]
